FAERS Safety Report 9068293 (Version 2)
Quarter: 2013Q1

REPORT INFORMATION
  Report Type: Spontaneous
  Country: AT (occurrence: AT)
  Receive Date: 20130206
  Receipt Date: 20130221
  Transmission Date: 20140127
  Serious: Yes (Hospitalization, Other)
  Sender: FDA-Public Use
  Company Number: AT-PFIZER INC-2013021556

PATIENT
  Age: 20 Year
  Sex: Male
  Weight: 72 kg

DRUGS (8)
  1. VFEND [Suspect]
     Dosage: 800 MG, UNK
     Route: 042
     Dates: start: 20130108, end: 20130109
  2. VFEND [Suspect]
     Dosage: 400 MG, UNK
     Route: 048
     Dates: start: 20130109, end: 20130116
  3. FRAGMIN [Concomitant]
     Indication: THROMBOSIS PROPHYLAXIS
     Dosage: 5000 IU, 1X/DAY
     Dates: start: 20121226, end: 20130116
  4. MUCOSOLVAN [Concomitant]
     Indication: BRONCHIAL SECRETION RETENTION
     Dosage: 30 MG, 1X/DAY
     Dates: start: 20121223, end: 20130116
  5. SEROQUEL [Concomitant]
     Dosage: 25 MG
  6. CATAPRESAN [Concomitant]
     Dosage: UNK
  7. MIRTAZAPINE [Concomitant]
     Dosage: 15 MG, 1X/DAY
  8. CONCOR [Concomitant]
     Dosage: 5 MG, 1X/DAY

REACTIONS (4)
  - Confusional state [Recovered/Resolved]
  - Panic attack [Recovered/Resolved]
  - Hallucinations, mixed [Recovered/Resolved]
  - Apathy [Recovered/Resolved]
